FAERS Safety Report 20582787 (Version 2)
Quarter: 2022Q1

REPORT INFORMATION
  Report Type: Spontaneous
  Country: GB (occurrence: GB)
  Receive Date: 20220311
  Receipt Date: 20220324
  Transmission Date: 20220423
  Serious: Yes (Disabling)
  Sender: FDA-Public Use
  Company Number: None

PATIENT
  Age: 61 Year
  Sex: Male
  Weight: 77 kg

DRUGS (5)
  1. FLUTICASONE FUROATE\VILANTEROL TRIFENATATE [Suspect]
     Active Substance: FLUTICASONE FUROATE\VILANTEROL TRIFENATATE
     Indication: Product used for unknown indication
     Dosage: 1 DF, QD,IF SYMPTOMS GET WORSE, CON...92MCG/DOSE / 22MCG/DOSE.
     Route: 055
     Dates: start: 20220127, end: 20220226
  2. FEXOFENADINE [Concomitant]
     Active Substance: FEXOFENADINE HYDROCHLORIDE
     Indication: Product used for unknown indication
     Dosage: 2 DF, BID
     Route: 065
     Dates: start: 20210823
  3. FLUTICASONE FUROATE [Concomitant]
     Active Substance: FLUTICASONE FUROATE
     Indication: Product used for unknown indication
     Dosage: 4 DF, QD (TWO IN EACH NOSTRIL.)
     Route: 045
     Dates: start: 20200805, end: 20220301
  4. SERTRALINE [Concomitant]
     Active Substance: SERTRALINE HYDROCHLORIDE
     Indication: Product used for unknown indication
     Dosage: USE AS DIRECTED.
     Route: 065
     Dates: start: 20210720
  5. SYMBICORT [Concomitant]
     Active Substance: BUDESONIDE\FORMOTEROL FUMARATE DIHYDRATE
     Indication: Product used for unknown indication
     Dosage: 4 DF, BID (PUFFS.)
     Route: 055
     Dates: start: 20201222

REACTIONS (4)
  - Bronchospasm [Recovered/Resolved]
  - Chest discomfort [Unknown]
  - Dysphonia [Unknown]
  - Malaise [Unknown]

NARRATIVE: CASE EVENT DATE: 20220201
